FAERS Safety Report 4309386-X (Version None)
Quarter: 2004Q1

REPORT INFORMATION
  Report Type: 
  Country: None (occurrence: None)
  Receive Date: 20040302
  Receipt Date: 20040223
  Transmission Date: 20041129
  Serious: Yes (Hospitalization)
  Sender: FDA-Public Use
  Company Number: GB-ROCHE-359875

PATIENT
  Age: 57 Year
  Sex: Female
  Weight: 100 kg

DRUGS (5)
  1. ORLISTAT [Suspect]
     Indication: OBESITY
     Route: 048
     Dates: start: 20030715, end: 20030915
  2. NIFEDIPINE [Concomitant]
     Indication: HYPERTENSION
     Route: 048
  3. BENDROFLUAZIDE [Concomitant]
     Indication: HYPERTENSION
     Route: 048
  4. SALBUTAMOL [Concomitant]
     Route: 055
  5. BECOTIDE [Concomitant]
     Route: 055

REACTIONS (1)
  - HEPATIC FAILURE [None]
